FAERS Safety Report 19983262 (Version 1)
Quarter: 2021Q4

REPORT INFORMATION
  Report Type: Spontaneous
  Country: GB (occurrence: GB)
  Receive Date: 20211021
  Receipt Date: 20211021
  Transmission Date: 20220303
  Serious: Yes (Other)
  Sender: FDA-Public Use
  Company Number: GB-ABBVIE-21K-167-4129647-00

PATIENT
  Sex: Female

DRUGS (5)
  1. EPILIM [Suspect]
     Active Substance: VALPROATE SODIUM
     Indication: Seizure
     Route: 065
     Dates: start: 1975, end: 1986
  2. EPILIM [Suspect]
     Active Substance: VALPROATE SODIUM
     Route: 065
     Dates: start: 1986, end: 20190101
  3. EPILIM [Suspect]
     Active Substance: VALPROATE SODIUM
     Route: 065
  4. TEGRETOL [Concomitant]
     Active Substance: CARBAMAZEPINE
     Indication: Product used for unknown indication
  5. DIAMOX SEQUELS [Concomitant]
     Active Substance: ACETAZOLAMIDE
     Indication: Product used for unknown indication

REACTIONS (6)
  - Abortion spontaneous [Unknown]
  - Mental impairment [Unknown]
  - Premature ageing [Unknown]
  - Amnesia [Unknown]
  - Flatulence [Unknown]
  - Maternal exposure during pregnancy [Unknown]

NARRATIVE: CASE EVENT DATE: 20090101
